FAERS Safety Report 19678409 (Version 1)
Quarter: 2021Q3

REPORT INFORMATION
  Report Type: Spontaneous
  Country: GB (occurrence: GB)
  Receive Date: 20210809
  Receipt Date: 20210809
  Transmission Date: 20211014
  Serious: Yes (Other)
  Sender: FDA-Public Use
  Company Number: GB-ENDO PHARMACEUTICALS INC-2021-002734

PATIENT
  Age: 49 Year
  Sex: Male

DRUGS (3)
  1. LANSOPRAZOLE. [Concomitant]
     Active Substance: LANSOPRAZOLE
     Indication: PRODUCT USED FOR UNKNOWN INDICATION
     Dosage: UNK UNKNOWN, UNKNOWN
     Route: 065
  2. FORTESTA [Suspect]
     Active Substance: TESTOSTERONE
     Dosage: 2 PUMPS PER DAY ON EVEN DATES AND 1 PUMP PER DAY ON ODD DATES
     Route: 065
  3. FORTESTA [Suspect]
     Active Substance: TESTOSTERONE
     Indication: PRODUCT USED FOR UNKNOWN INDICATION
     Dosage: 6 PUMPS PER DAY
     Route: 065

REACTIONS (6)
  - Mood altered [Unknown]
  - Application site erythema [Unknown]
  - Snoring [Unknown]
  - Hypoxia [Unknown]
  - Application site dryness [Unknown]
  - Polycythaemia [Recovering/Resolving]
